FAERS Safety Report 24617043 (Version 2)
Quarter: 2024Q4

REPORT INFORMATION
  Report Type: Report from Study
  Country: CA (occurrence: CA)
  Receive Date: 20241114
  Receipt Date: 20241121
  Transmission Date: 20250114
  Serious: No
  Sender: CELLTRION
  Company Number: CA-CELLTRION INC.-2024CA000383

PATIENT

DRUGS (8)
  1. ADALIMUMAB-AATY [Suspect]
     Active Substance: ADALIMUMAB-AATY
     Indication: Crohn^s disease
     Dosage: 40 MG, Q2WEEKS
     Route: 058
     Dates: start: 20230725, end: 20241105
  2. ADALIMUMAB-AATY [Suspect]
     Active Substance: ADALIMUMAB-AATY
     Dosage: 40 MG , WEEKS-2 WEEKS
     Route: 058
     Dates: start: 20240121
  3. ADALIMUMAB-AATY [Suspect]
     Active Substance: ADALIMUMAB-AATY
     Dosage: 40 MG, WEEKLY
     Route: 058
     Dates: start: 20240903
  4. FOLIC ACID [Concomitant]
     Active Substance: FOLIC ACID
  5. PANTOPRAZOLE [Concomitant]
     Active Substance: PANTOPRAZOLE
  6. VITAMIN B12 [Concomitant]
     Active Substance: CYANOCOBALAMIN
  7. METHOTREXATE [Concomitant]
     Active Substance: METHOTREXATE
     Dosage: 2 TABS PER WEEK
  8. METHOTREXATE [Concomitant]
     Active Substance: METHOTREXATE
     Dosage: 1 TAB PER WEEK
     Dates: start: 202312

REACTIONS (2)
  - Therapy partial responder [Unknown]
  - Drug ineffective [Unknown]
